FAERS Safety Report 21578237 (Version 4)
Quarter: 2023Q1

REPORT INFORMATION
  Report Type: Spontaneous
  Country: US (occurrence: US)
  Receive Date: 20221110
  Receipt Date: 20230125
  Transmission Date: 20230418
  Serious: No
  Sender: FDA-Public Use
  Company Number: US-PFIZER INC-202201276672

PATIENT
  Age: 10 Year
  Sex: Female

DRUGS (1)
  1. GENOTROPIN [Suspect]
     Active Substance: SOMATROPIN
     Indication: Body height abnormal
     Dosage: 1 MG, 1X/DAY

REACTIONS (3)
  - Poor quality device used [Unknown]
  - Incorrect dose administered [Unknown]
  - Needle issue [Unknown]
